FAERS Safety Report 16637567 (Version 1)
Quarter: 2019Q3

REPORT INFORMATION
  Report Type: Spontaneous
  Country: US (occurrence: US)
  Receive Date: 20190726
  Receipt Date: 20190726
  Transmission Date: 20191004
  Serious: Yes (Hospitalization, Other)
  Sender: FDA-Public Use
  Company Number: None

PATIENT
  Age: 53 Year
  Sex: Male
  Weight: 76.5 kg

DRUGS (4)
  1. MONTELUKAST 10MG QHS [Concomitant]
     Dates: start: 20110519
  2. FEXOFENADINE 180MG QD [Concomitant]
     Dates: start: 20170802
  3. WIXELA INHUB [Suspect]
     Active Substance: FLUTICASONE PROPIONATE\SALMETEROL XINAFOATE
     Indication: ASTHMA
     Dates: start: 20190630, end: 20190630
  4. ALBUTEROL HFA (PROVENTIL) 90MCG [Concomitant]
     Dates: start: 20171017

REACTIONS (6)
  - Headache [None]
  - Vision blurred [None]
  - Dizziness [None]
  - Lacrimation increased [None]
  - Condition aggravated [None]
  - Chest pain [None]

NARRATIVE: CASE EVENT DATE: 20190630
